FAERS Safety Report 16006394 (Version 1)
Quarter: 2019Q1

REPORT INFORMATION
  Report Type: Spontaneous
  Country: US (occurrence: US)
  Receive Date: 20190226
  Receipt Date: 20190226
  Transmission Date: 20190418
  Serious: No
  Sender: FDA-Public Use
  Company Number: US-FERRINGPH-2018FE00586

PATIENT
  Age: 15 Year
  Sex: Female
  Weight: 36.28 kg

DRUGS (2)
  1. SYNTHROID [Concomitant]
     Active Substance: LEVOTHYROXINE SODIUM
     Indication: PRODUCT USED FOR UNKNOWN INDICATION
     Route: 065
  2. DESMOPRESSIN [Suspect]
     Active Substance: DESMOPRESSIN
     Indication: DIABETES INSIPIDUS
     Dosage: SPRAYS IN ONE NOSTRIL IN THE MORNING AND 1 SPRAY IN ONE NOSTRIL IN THE EVENING
     Route: 045

REACTIONS (2)
  - Hormone level abnormal [Unknown]
  - Therapeutic response decreased [Not Recovered/Not Resolved]

NARRATIVE: CASE EVENT DATE: 20180131
